FAERS Safety Report 17146628 (Version 1)
Quarter: 2019Q4

REPORT INFORMATION
  Report Type: Spontaneous
  Country: US (occurrence: US)
  Receive Date: 20191212
  Receipt Date: 20191212
  Transmission Date: 20200122
  Serious: No
  Sender: FDA-Public Use
  Company Number: US-BAYER-2019-221142

PATIENT
  Age: 85 Year
  Sex: Female

DRUGS (2)
  1. ESTRADIOL HEMIHYDRATE [Suspect]
     Active Substance: ESTRADIOL HEMIHYDRATE
     Indication: OSTEOPOROSIS
     Dosage: UNK UNK, OW
     Route: 062
  2. ESTRADIOL HEMIHYDRATE [Suspect]
     Active Substance: ESTRADIOL HEMIHYDRATE
     Indication: OSTEOPOROSIS
     Dosage: UNK UNK, OW
     Route: 062

REACTIONS (3)
  - Application site irritation [None]
  - Application site pruritus [None]
  - Application site rash [None]
